FAERS Safety Report 8444588-2 (Version None)
Quarter: 2012Q2

REPORT INFORMATION
  Report Type: 
  Country: None (occurrence: None)
  Receive Date: 20120611
  Receipt Date: 20120528
  Transmission Date: 20120825
  Serious: Yes (Disabling, Other)
  Sender: FDA-Public Use
  Company Number: 2012SP018713

PATIENT
  Age: 68 Year
  Sex: Male
  Weight: 61 kg

DRUGS (12)
  1. VOLTAREN [Concomitant]
  2. PEG-INTRON [Suspect]
     Indication: HEPATITIS C
     Dosage: 1.5 MCG/KG, QW, SC
     Route: 058
     Dates: start: 20120202
  3. ACTOS [Concomitant]
  4. REBETOL [Suspect]
     Indication: HEPATITIS C
     Dosage: 800;600;400;200 MG, QD, PO
     Route: 048
     Dates: start: 20120406, end: 20120419
  5. REBETOL [Suspect]
     Indication: HEPATITIS C
     Dosage: 800;600;400;200 MG, QD, PO
     Route: 048
     Dates: start: 20120420
  6. REBETOL [Suspect]
     Indication: HEPATITIS C
     Dosage: 800;600;400;200 MG, QD, PO
     Route: 048
     Dates: start: 20120202, end: 20120229
  7. REBETOL [Suspect]
     Indication: HEPATITIS C
     Dosage: 800;600;400;200 MG, QD, PO
     Route: 048
     Dates: start: 20120301, end: 20120405
  8. TELAVIC (ANTIVIRALS NOS) [Suspect]
     Indication: HEPATITIS C
     Dosage: 2250;1500 MG, QD, PO
     Route: 048
     Dates: start: 20120413, end: 20120426
  9. TELAVIC (ANTIVIRALS NOS) [Suspect]
     Indication: HEPATITIS C
     Dosage: 2250;1500 MG, QD, PO
     Route: 048
     Dates: start: 20120202, end: 20120412
  10. GLYBURIDE [Concomitant]
  11. EPADEL-S [Concomitant]
  12. ACTOS [Concomitant]

REACTIONS (12)
  - CONTUSION [None]
  - EAR HAEMORRHAGE [None]
  - PRURITUS [None]
  - BLOOD CREATININE INCREASED [None]
  - RASH [None]
  - BLOOD BILIRUBIN INCREASED [None]
  - HEARING IMPAIRED [None]
  - SKULL FRACTURED BASE [None]
  - SUBDURAL HAEMATOMA [None]
  - ANAEMIA [None]
  - FALL [None]
  - LACERATION [None]
